FAERS Safety Report 8445379-9 (Version None)
Quarter: 2012Q2

REPORT INFORMATION
  Report Type: 
  Country: None (occurrence: None)
  Receive Date: 20120618
  Receipt Date: 20110531
  Transmission Date: 20120825
  Serious: No
  Sender: FDA-Public Use
  Company Number: US-TEVA-2011002729

PATIENT
  Age: 30 Year
  Sex: Female

DRUGS (2)
  1. SOMA [Suspect]
  2. FENTORA [Suspect]
     Route: 002

REACTIONS (2)
  - SOMNOLENCE [None]
  - INTENTIONAL DRUG MISUSE [None]
